FAERS Safety Report 12582706 (Version 2)
Quarter: 2016Q3

REPORT INFORMATION
  Report Type: Spontaneous
  Country: US (occurrence: US)
  Receive Date: 20160722
  Receipt Date: 20160727
  Transmission Date: 20161109
  Serious: Yes (Other)
  Sender: FDA-Public Use
  Company Number: US-TEVA-679055USA

PATIENT
  Sex: Female

DRUGS (1)
  1. ZECUITY [Suspect]
     Active Substance: SUMATRIPTAN SUCCINATE
     Route: 062
     Dates: start: 201604, end: 201604

REACTIONS (9)
  - Application site reaction [Not Recovered/Not Resolved]
  - Thermal burn [Recovered/Resolved]
  - Urticaria [Unknown]
  - Application site vesicles [Unknown]
  - Application site discolouration [Not Recovered/Not Resolved]
  - Application site scab [Unknown]
  - Application site scar [Not Recovered/Not Resolved]
  - Application site pain [Recovered/Resolved]
  - Application site pruritus [Not Recovered/Not Resolved]

NARRATIVE: CASE EVENT DATE: 201604
